FAERS Safety Report 4705656-1 (Version None)
Quarter: 2005Q2

REPORT INFORMATION
  Report Type: 
  Country: None (occurrence: None)
  Receive Date: 20050630
  Receipt Date: 20050616
  Transmission Date: 20051028
  Serious: Yes (Death, Hospitalization)
  Sender: FDA-Public Use
  Company Number: 02100-JPN-05-0238

PATIENT
  Age: 79 Year
  Sex: Male

DRUGS (8)
  1. CILOSTAZOL [Suspect]
     Indication: CEREBRAL INFARCTION
     Dosage: 200 MG ORAL
     Route: 048
     Dates: start: 20050118, end: 20050330
  2. NICORANDIL [Suspect]
     Indication: MYOCARDIAL INFARCTION
     Dosage: 15 MG ORAL
     Route: 048
     Dates: start: 20050202, end: 20050330
  3. LOSARTAN POTASSIUM [Suspect]
     Indication: HYPERTENSION
     Dosage: 25 MG ORAL
     Route: 048
     Dates: start: 20050304, end: 20050327
  4. OMEPRAZOLE [Suspect]
     Indication: REFLUX OESOPHAGITIS
     Dosage: 20 MG ORAL
     Route: 048
     Dates: end: 20050330
  5. ASPIRIN/DIALUMINATE [Concomitant]
  6. ARGATROBAN [Concomitant]
  7. DEXTRAN 40 GLUCOSE [Concomitant]
  8. ASPIRIN [Concomitant]

REACTIONS (9)
  - C-REACTIVE PROTEIN INCREASED [None]
  - CEREBRAL INFARCTION [None]
  - CHEST DISCOMFORT [None]
  - EPIGASTRIC DISCOMFORT [None]
  - FACIAL PALSY [None]
  - HYPOXIA [None]
  - INTERSTITIAL LUNG DISEASE [None]
  - PNEUMONIA [None]
  - TRANSIENT ISCHAEMIC ATTACK [None]
